FAERS Safety Report 23816238 (Version 1)
Quarter: 2024Q2

REPORT INFORMATION
  Report Type: Spontaneous
  Country: RO (occurrence: RO)
  Receive Date: 20240503
  Receipt Date: 20240503
  Transmission Date: 20240716
  Serious: Yes (Hospitalization, Other)
  Sender: FDA-Public Use
  Company Number: RO-BRISTOL-MYERS SQUIBB COMPANY-2024-066203

PATIENT
  Age: 72 Year
  Sex: Female

DRUGS (3)
  1. INREBIC [Suspect]
     Active Substance: FEDRATINIB HYDROCHLORIDE
     Indication: Myelofibrosis
     Dosage: DOSE : FOR 1 YEAR;     FREQ : ONCE DAILY
  2. INREBIC [Suspect]
     Active Substance: FEDRATINIB HYDROCHLORIDE
     Dosage: DOSE : FOR 1 YEAR;     FREQ : ONCE DAILY
  3. INREBIC [Suspect]
     Active Substance: FEDRATINIB HYDROCHLORIDE
     Dosage: DOSE : FOR 1 YEAR;     FREQ : ONCE DAILY

REACTIONS (2)
  - Hepatic cytolysis [Recovered/Resolved]
  - Cholecystitis [Recovered/Resolved]
